FAERS Safety Report 7953263-X (Version None)
Quarter: 2011Q4

REPORT INFORMATION
  Report Type: 
  Country: None (occurrence: None)
  Receive Date: 20111201
  Receipt Date: 20111116
  Transmission Date: 20120403
  Serious: Yes (Hospitalization)
  Sender: FDA-Public Use
  Company Number: US-ROCHE-1008754

PATIENT
  Sex: Male
  Weight: 90.6 kg

DRUGS (7)
  1. COPEGUS [Suspect]
     Indication: HEPATITIS C
     Route: 048
     Dates: start: 20110613
  2. BLINDED TMC435 (NS3/4A PROTEASE INHIBITOR) [Suspect]
     Indication: HEPATITIS C
     Dosage: DAILY
     Route: 048
     Dates: start: 20110613
  3. LISINOPRIL [Concomitant]
  4. MULTIPLE VITAMIN [Concomitant]
  5. PEGINTERFERON ALFA-2A [Suspect]
     Indication: HEPATITIS C
     Route: 058
     Dates: start: 20110613
  6. METFORMIN HCL [Concomitant]
  7. GLIPIZIDE [Concomitant]

REACTIONS (3)
  - SYNCOPE [None]
  - RIB FRACTURE [None]
  - PNEUMONIA [None]
